FAERS Safety Report 13134156 (Version 4)
Quarter: 2017Q1

REPORT INFORMATION
  Report Type: Spontaneous
  Country: US (occurrence: US)
  Receive Date: 20170120
  Receipt Date: 20170202
  Transmission Date: 20170428
  Serious: Yes (Death)
  Sender: FDA-Public Use
  Company Number: PHHY2017US008108

PATIENT
  Age: 64 Year
  Sex: Male

DRUGS (4)
  1. MIDODRINE [Suspect]
     Active Substance: MIDODRINE
     Indication: HEPATORENAL SYNDROME
     Route: 065
  2. ALBUMIN NOS [Concomitant]
     Indication: HEPATORENAL SYNDROME
     Dosage: 1 G/KG, QD
     Route: 042
  3. ALBUMIN NOS [Concomitant]
     Dosage: 25-50 G, QD
     Route: 042
  4. OCTREOTIDE. [Suspect]
     Active Substance: OCTREOTIDE
     Indication: HEPATORENAL SYNDROME
     Route: 065

REACTIONS (2)
  - Metabolic acidosis [Fatal]
  - Product use issue [Unknown]
